FAERS Safety Report 4652138-1 (Version None)
Quarter: 2005Q2

REPORT INFORMATION
  Report Type: 
  Country: None (occurrence: None)
  Receive Date: 20050504
  Receipt Date: 20050421
  Transmission Date: 20051028
  Serious: Yes (Hospitalization)
  Sender: FDA-Public Use
  Company Number: ITWYE604321APR05

PATIENT
  Sex: Female

DRUGS (3)
  1. ENBREL [Suspect]
     Indication: RHEUMATOID ARTHRITIS
     Route: 058
     Dates: start: 20041021, end: 20050107
  2. NICIZINA [Suspect]
     Indication: TUBERCULOSIS PROPHYLAXIS
     Route: 048
     Dates: start: 20041021, end: 20050107
  3. MEDROL [Concomitant]
     Route: 048
     Dates: start: 20010101

REACTIONS (3)
  - PERICARDIAL EFFUSION [None]
  - PLEURAL EFFUSION [None]
  - VIRAL INFECTION [None]
